FAERS Safety Report 4681652-8 (Version None)
Quarter: 2005Q2

REPORT INFORMATION
  Report Type: 
  Country: None (occurrence: None)
  Receive Date: 20050602
  Receipt Date: 20050525
  Transmission Date: 20051028
  Serious: Yes (Hospitalization)
  Sender: FDA-Public Use
  Company Number: 163-20785-05050109

PATIENT
  Age: 10 Year
  Sex: Female

DRUGS (1)
  1. THALOMID [Suspect]
     Indication: NEUROFIBROMATOSIS
     Dosage: 200 MG, QD, ORAL
     Route: 048
     Dates: start: 20050210

REACTIONS (2)
  - ARNOLD-CHIARI MALFORMATION [None]
  - DISEASE PROGRESSION [None]
